FAERS Safety Report 5102270-3 (Version None)
Quarter: 2006Q3

REPORT INFORMATION
  Report Type: 
  Country: None (occurrence: None)
  Receive Date: 20060731
  Receipt Date: 20060525
  Transmission Date: 20061208
  Serious: No
  Sender: FDA-Public Use
  Company Number: 2006PV014530

PATIENT
  Age: 53 Year
  Weight: 88.905 kg

DRUGS (4)
  1. BYETTA [Suspect]
     Indication: DIABETES MELLITUS NON-INSULIN-DEPENDENT
     Dosage: 5 MCG;BID;SC
     Route: 058
     Dates: start: 20060523, end: 20060524
  2. LANTUS [Concomitant]
  3. HUMALOG [Concomitant]
  4. PHENOBARBITAL [Concomitant]

REACTIONS (6)
  - ANXIETY [None]
  - FEELING JITTERY [None]
  - NAUSEA [None]
  - PALPITATIONS [None]
  - PRURITUS GENERALISED [None]
  - VOMITING [None]
